FAERS Safety Report 19242079 (Version 2)
Quarter: 2022Q2

REPORT INFORMATION
  Report Type: Spontaneous
  Country: US (occurrence: US)
  Receive Date: 20210510
  Receipt Date: 20220422
  Transmission Date: 20220721
  Serious: Yes (Other)
  Sender: FDA-Public Use
  Company Number: US-TEVA-2021-US-1909083

PATIENT
  Age: 63 Year
  Sex: Female
  Weight: 62.6 kg

DRUGS (5)
  1. ALBUTEROL SULFATE [Suspect]
     Active Substance: ALBUTEROL SULFATE
     Indication: Asthma
     Dosage: 2 PUFFS
     Route: 065
     Dates: start: 202104
  2. ALBUTEROL SULFATE [Suspect]
     Active Substance: ALBUTEROL SULFATE
  3. QVAR REDIHALER [Suspect]
     Active Substance: BECLOMETHASONE DIPROPIONATE
     Indication: Asthma
     Route: 065
  4. PROAIR HFA [Suspect]
     Active Substance: ALBUTEROL SULFATE
     Indication: Asthma
     Route: 065
  5. PROAIR HFA [Suspect]
     Active Substance: ALBUTEROL SULFATE

REACTIONS (7)
  - Agonal respiration [Unknown]
  - Feeling of despair [Unknown]
  - Asthma [Unknown]
  - Inappropriate schedule of product administration [Unknown]
  - Product communication issue [Unknown]
  - Wrong technique in product usage process [Unknown]
  - Incorrect dose administered [Unknown]
